FAERS Safety Report 4797421-4 (Version None)
Quarter: 2005Q4

REPORT INFORMATION
  Report Type: 
  Country: None (occurrence: None)
  Receive Date: 20051013
  Receipt Date: 20020725
  Transmission Date: 20060501
  Serious: Yes (Death, Hospitalization, Other)
  Sender: FDA-Public Use
  Company Number: US-GILEAD-2002-04737

PATIENT
  Age: 27 Year
  Sex: Male
  Weight: 50 kg

DRUGS (8)
  1. VIREAD [Suspect]
     Indication: HIV INFECTION
  2. DDI EC [Suspect]
     Indication: HIV INFECTION
  3. LOPINAVIR W/RITONAVIR [Concomitant]
     Indication: HIV INFECTION
  4. EPOETIN ALFA [Concomitant]
  5. AZITHROMYCIN [Concomitant]
  6. RIFABUTIN [Concomitant]
  7. FLUCONAZOLE [Concomitant]
  8. SULFAMETHOXAZOLE + TRIMETHOPRIM [Concomitant]

REACTIONS (13)
  - ACUTE RESPIRATORY DISTRESS SYNDROME [None]
  - ASCITES [None]
  - DRUG INTERACTION [None]
  - DRUG TOXICITY [None]
  - GENERALISED OEDEMA [None]
  - HYPOTENSION [None]
  - LACTIC ACIDOSIS [None]
  - MULTI-ORGAN FAILURE [None]
  - PANCREATIC PSEUDOCYST [None]
  - PANCREATITIS NECROTISING [None]
  - PLEURAL EFFUSION [None]
  - TACHYCARDIA [None]
  - WEIGHT DECREASED [None]
